FAERS Safety Report 9538522 (Version 1)
Quarter: 2013Q2

REPORT INFORMATION
  Report Type: Spontaneous
  Country: US (occurrence: None)
  Receive Date: 20130517
  Receipt Date: 20130517
  Transmission Date: 20140414
  Serious: No
  Sender: FDA-Public Use
  Company Number: 1000043092

PATIENT
  Age: 36 Year
  Sex: Female

DRUGS (1)
  1. VIIBRYD (VILAZODONE HYDROCHLORIDE) (TABLETS) [Suspect]

REACTIONS (7)
  - Anaemia [None]
  - Blood potassium decreased [None]
  - Blood calcium decreased [None]
  - Hypoaesthesia [None]
  - Swelling face [None]
  - Weight increased [None]
  - Pain in extremity [None]
